FAERS Safety Report 25748998 (Version 1)
Quarter: 2025Q3

REPORT INFORMATION
  Report Type: Other
  Country: CA (occurrence: CA)
  Receive Date: 20250902
  Receipt Date: 20250902
  Transmission Date: 20251021
  Serious: Yes (Death, Other)
  Sender: INTERCEPT PHARMACEUTICALS
  Company Number: CA-INTERCEPT-PM2019000410

PATIENT
  Age: 72 Year
  Sex: Female

DRUGS (29)
  1. OCALIVA [Suspect]
     Active Substance: OBETICHOLIC ACID
     Indication: Primary biliary cholangitis
     Dosage: 5 MILLIGRAM, QD
     Route: 048
     Dates: start: 20190227
  2. OCALIVA [Suspect]
     Active Substance: OBETICHOLIC ACID
     Dosage: 10 MILLIGRAM, QD
     Route: 048
     Dates: start: 20210505
  3. URSODIOL [Concomitant]
     Active Substance: URSODIOL
     Indication: Primary biliary cholangitis
     Dates: start: 20151101
  4. TACROLIMUS [Concomitant]
     Active Substance: TACROLIMUS
     Indication: Product used for unknown indication
     Dosage: 1 MG, QD
  5. MYCOPHENOLIC ACID [Concomitant]
     Active Substance: MYCOPHENOLIC ACID
     Indication: Product used for unknown indication
  6. MYCOPHENOLIC ACID [Concomitant]
     Active Substance: MYCOPHENOLIC ACID
  7. MYCOPHENOLIC ACID [Concomitant]
     Active Substance: MYCOPHENOLIC ACID
  8. MYCOPHENOLIC ACID [Concomitant]
     Active Substance: MYCOPHENOLIC ACID
  9. MYCOPHENOLIC ACID [Concomitant]
     Active Substance: MYCOPHENOLIC ACID
  10. MYCOPHENOLIC ACID [Concomitant]
     Active Substance: MYCOPHENOLIC ACID
  11. CANDESARTAN [Concomitant]
     Active Substance: CANDESARTAN
     Indication: Product used for unknown indication
  12. CANDESARTAN [Concomitant]
     Active Substance: CANDESARTAN
  13. CANDESARTAN [Concomitant]
     Active Substance: CANDESARTAN
  14. CANDESARTAN [Concomitant]
     Active Substance: CANDESARTAN
  15. CANDESARTAN [Concomitant]
     Active Substance: CANDESARTAN
  16. CANDESARTAN [Concomitant]
     Active Substance: CANDESARTAN
  17. VITAMIN D [Concomitant]
     Active Substance: VITAMIN D NOS
     Indication: Product used for unknown indication
  18. VITAMIN D [Concomitant]
     Active Substance: VITAMIN D NOS
  19. VITAMIN D [Concomitant]
     Active Substance: VITAMIN D NOS
  20. VITAMIN D [Concomitant]
     Active Substance: VITAMIN D NOS
  21. VITAMIN D [Concomitant]
     Active Substance: VITAMIN D NOS
  22. VITAMIN D [Concomitant]
     Active Substance: VITAMIN D NOS
  23. OMEGA 3 [Concomitant]
     Active Substance: CAPSAICIN
     Indication: Product used for unknown indication
  24. OMEGA 3 [Concomitant]
     Active Substance: CAPSAICIN
  25. OMEGA 3 [Concomitant]
     Active Substance: CAPSAICIN
  26. OMEGA 3 [Concomitant]
     Active Substance: CAPSAICIN
  27. OMEGA 3 [Concomitant]
     Active Substance: CAPSAICIN
  28. OMEGA 3 [Concomitant]
     Active Substance: CAPSAICIN
  29. IRON [Concomitant]
     Active Substance: IRON
     Indication: Product used for unknown indication
     Dosage: 300 MG, QD

REACTIONS (7)
  - Death [Fatal]
  - Dry skin [Not Recovered/Not Resolved]
  - Dry mouth [Unknown]
  - Blood alkaline phosphatase increased [Not Recovered/Not Resolved]
  - Blood bilirubin increased [Not Recovered/Not Resolved]
  - Drug ineffective [Unknown]
  - Product dose omission issue [Unknown]

NARRATIVE: CASE EVENT DATE: 20190227
